FAERS Safety Report 4719442-X (Version None)
Quarter: 2005Q3

REPORT INFORMATION
  Report Type: 
  Country: None (occurrence: None)
  Receive Date: 20050719
  Receipt Date: 20050705
  Transmission Date: 20060218
  Serious: Yes (Other)
  Sender: FDA-Public Use
  Company Number: US_0507119865

PATIENT
  Age: 41 Year
  Sex: Male
  Weight: 36 kg

DRUGS (2)
  1. ZYPREXA [Suspect]
     Indication: BIPOLAR DISORDER
     Dates: start: 20000701, end: 20001001
  2. SEROQUEL [Concomitant]

REACTIONS (4)
  - DIABETES MELLITUS [None]
  - LIVER DISORDER [None]
  - PANCREATITIS [None]
  - RENAL DISORDER [None]
